FAERS Safety Report 20058201 (Version 1)
Quarter: 2021Q4

REPORT INFORMATION
  Report Type: Spontaneous
  Country: US (occurrence: None)
  Receive Date: 20211111
  Receipt Date: 20211111
  Transmission Date: 20220303
  Serious: Yes (Other)
  Sender: FDA-Public Use
  Company Number: None

PATIENT
  Age: 25 Year
  Sex: Male
  Weight: 86.2 kg

DRUGS (1)
  1. BAMLANIVIMAB\ETESEVIMAB [Suspect]
     Active Substance: BAMLANIVIMAB\ETESEVIMAB
     Indication: COVID-19
     Route: 041
     Dates: start: 20211022, end: 20211022

REACTIONS (5)
  - Infusion related reaction [None]
  - Flushing [None]
  - Hyperhidrosis [None]
  - Headache [None]
  - Sensation of blood flow [None]

NARRATIVE: CASE EVENT DATE: 20211022
